FAERS Safety Report 16476136 (Version 2)
Quarter: 2019Q4

REPORT INFORMATION
  Report Type: Report from Study
  Country: US (occurrence: US)
  Receive Date: 20190625
  Receipt Date: 20191220
  Transmission Date: 20200122
  Serious: No
  Sender: FDA-Public Use
  Company Number: PHEH2019US026608

PATIENT
  Sex: Female

DRUGS (1)
  1. GILENYA [Suspect]
     Active Substance: FINGOLIMOD HYDROCHLORIDE
     Indication: MULTIPLE SCLEROSIS
     Dosage: 0.5 MG, QD
     Route: 048
     Dates: start: 2014

REACTIONS (6)
  - Fatigue [Unknown]
  - Nasopharyngitis [Unknown]
  - Peroneal nerve palsy [Unknown]
  - Motor dysfunction [Unknown]
  - Abdominal discomfort [Unknown]
  - Cough [Unknown]
